FAERS Safety Report 9772387 (Version 3)
Quarter: 2014Q1

REPORT INFORMATION
  Report Type: Spontaneous
  Country: US (occurrence: US)
  Receive Date: 20131219
  Receipt Date: 20140316
  Transmission Date: 20141002
  Serious: Yes (Other)
  Sender: FDA-Public Use
  Company Number: US-009507513-1312USA008456

PATIENT
  Age: 73 Year
  Sex: Male

DRUGS (3)
  1. NASONEX [Suspect]
     Indication: HYPERSENSITIVITY
     Dosage: ABOUT 2 TO 4 SPRAYS A DAY
     Route: 045
     Dates: start: 201212
  2. NASONEX [Suspect]
     Dosage: ABOUT 2 TO 4 SPRAYS A DAY
     Route: 045
     Dates: start: 201212
  3. NASONEX [Suspect]
     Dosage: UNK, QID, 2 SPRAYS IN EACH NOSTRIL
     Route: 045

REACTIONS (5)
  - Cholecystectomy [Unknown]
  - Rhinorrhoea [Not Recovered/Not Resolved]
  - Drug dose omission [Unknown]
  - Drug prescribing error [Unknown]
  - Product quality issue [Unknown]
